FAERS Safety Report 9204581 (Version 2)
Quarter: 2020Q1

REPORT INFORMATION
  Report Type: Spontaneous
  Country: US (occurrence: US)
  Receive Date: 20130402
  Receipt Date: 20200311
  Transmission Date: 20200409
  Serious: Yes (Hospitalization)
  Sender: FDA-Public Use
  Company Number: US-PFIZER INC-2013100974

PATIENT
  Age: 21 Year
  Sex: Female
  Weight: 68.4 kg

DRUGS (1)
  1. RAPAMUNE [Suspect]
     Active Substance: SIROLIMUS
     Indication: LIVER TRANSPLANT
     Dosage: 1 MG, 2X/DAY
     Dates: start: 20110121

REACTIONS (3)
  - Off label use [Unknown]
  - Liver transplant rejection [Unknown]
  - Product use in unapproved indication [Unknown]
